FAERS Safety Report 7811194-X (Version None)
Quarter: 2011Q4

REPORT INFORMATION
  Report Type: 
  Country: None (occurrence: None)
  Receive Date: 20111011
  Receipt Date: 20110929
  Transmission Date: 20120403
  Serious: Yes (Death, Hospitalization)
  Sender: FDA-Public Use
  Company Number: 124285

PATIENT
  Age: 79 Year
  Sex: Male
  Weight: 78 kg

DRUGS (2)
  1. ETOPOSIDE [Suspect]
     Indication: NON-SMALL CELL LUNG CANCER
     Dosage: 50 MG/M2 IV
     Route: 042
     Dates: start: 20110418
  2. ETOPOSIDE [Suspect]
     Indication: NON-SMALL CELL LUNG CANCER
     Dosage: 50 MG/M2 IV
     Route: 042
     Dates: start: 20110314

REACTIONS (10)
  - HAEMOPTYSIS [None]
  - FAILURE TO THRIVE [None]
  - HYPOTENSION [None]
  - RETROPERITONEAL HAEMORRHAGE [None]
  - CONSTIPATION [None]
  - PNEUMONIA [None]
  - MOUTH HAEMORRHAGE [None]
  - ANAEMIA [None]
  - SYNCOPE [None]
  - LYMPHOPENIA [None]
